FAERS Safety Report 16745874 (Version 2)
Quarter: 2019Q3

REPORT INFORMATION
  Report Type: Report from Study
  Country: DE (occurrence: DE)
  Receive Date: 20190827
  Receipt Date: 20190919
  Transmission Date: 20191005
  Serious: Yes (Hospitalization)
  Sender: FDA-Public Use
  Company Number: DE-MYLANLABS-2019M1079395

PATIENT
  Age: 21 Year
  Sex: Female
  Weight: 55 kg

DRUGS (13)
  1. L-THYROXIN                         /00068002/ [Concomitant]
     Active Substance: LEVOTHYROXINE SODIUM
     Dosage: 75 MILLIGRAM, QD
     Route: 048
     Dates: start: 2005
  2. ZOLMITRIPTAN. [Concomitant]
     Active Substance: ZOLMITRIPTAN
     Indication: PAIN
     Dosage: 25 MILLIGRAM, PRN
  3. LEVETIRACETAM. [Suspect]
     Active Substance: LEVETIRACETAM
     Dosage: 500 MILLIGRAM, QD
     Route: 048
     Dates: start: 20180509, end: 20180515
  4. LACOSAMIDE. [Suspect]
     Active Substance: LACOSAMIDE
     Indication: EPILEPSY
     Dosage: 500 MILLIGRAM
     Route: 065
     Dates: start: 20180509
  5. PANTOZOL                           /02692601/ [Concomitant]
     Indication: PROPHYLAXIS
     Dosage: UNK
     Dates: start: 2013
  6. NOVALGIN                           /00169801/ [Concomitant]
     Active Substance: ACETAMINOPHEN\CAFFEINE\PROPYPHENAZONE
     Indication: PAIN
     Dosage: UNK
     Dates: start: 2010, end: 20190321
  7. LEVETIRACETAM. [Suspect]
     Active Substance: LEVETIRACETAM
     Dosage: 1000 MILLIGRAM, QD
     Route: 048
     Dates: start: 20180516, end: 20180522
  8. LEVETIRACETAM. [Suspect]
     Active Substance: LEVETIRACETAM
     Dosage: 1500 MILLIGRAM, QD
     Route: 048
     Dates: start: 20180523, end: 20180529
  9. LEVETIRACETAM. [Suspect]
     Active Substance: LEVETIRACETAM
     Indication: EPILEPSY
     Dosage: 1000 MG, 2X/DAY (BID)
     Route: 048
     Dates: start: 20180509
  10. LAMOTRIGINE. [Concomitant]
     Active Substance: LAMOTRIGINE
     Indication: EPILEPSY
     Dosage: UNK
     Dates: start: 201410
  11. L-THYROXIN                         /00068002/ [Concomitant]
     Active Substance: LEVOTHYROXINE SODIUM
     Indication: THYROID DISORDER
     Dosage: UNK
     Dates: start: 2005
  12. LEVETIRACETAM. [Suspect]
     Active Substance: LEVETIRACETAM
     Dosage: 3000 MILLIGRAM, QD
     Route: 048
     Dates: start: 201902
  13. LAMOTRIGINE. [Concomitant]
     Active Substance: LAMOTRIGINE
     Dosage: 400 MILLIGRAM, QD
     Dates: start: 201410, end: 20180704

REACTIONS (3)
  - Off label use [Unknown]
  - Seizure [Recovered/Resolved]
  - Drug ineffective [Unknown]

NARRATIVE: CASE EVENT DATE: 2018
